FAERS Safety Report 5521622-0 (Version None)
Quarter: 2007Q4

REPORT INFORMATION
  Report Type: 
  Country: None (occurrence: None)
  Receive Date: 20071119
  Receipt Date: 20071119
  Transmission Date: 20080405
  Serious: No
  Sender: FDA-Public Use
  Company Number: None

PATIENT

DRUGS (1)
  1. PHOSPHO-SODA [Suspect]

REACTIONS (4)
  - ANXIETY [None]
  - NEPHROPATHY [None]
  - PAIN [None]
  - RENAL IMPAIRMENT [None]
